FAERS Safety Report 22536351 (Version 1)
Quarter: 2023Q2

REPORT INFORMATION
  Report Type: Report from Study
  Country: CO (occurrence: CO)
  Receive Date: 20230608
  Receipt Date: 20230608
  Transmission Date: 20230722
  Serious: Yes (Death, Other)
  Sender: FDA-Public Use
  Company Number: CO-AstraZeneca-2023A126631

PATIENT
  Age: 97 Day
  Sex: Male

DRUGS (1)
  1. SYNAGIS [Suspect]
     Active Substance: PALIVIZUMAB
     Indication: Respiratory syncytial virus infection
     Dosage: MONTHLY
     Route: 030
     Dates: start: 20230420

REACTIONS (3)
  - Death [Fatal]
  - Asphyxia [Fatal]
  - Aspiration [Fatal]

NARRATIVE: CASE EVENT DATE: 20230524
